FAERS Safety Report 11857229 (Version 2)
Quarter: 2016Q1

REPORT INFORMATION
  Report Type: Spontaneous
  Country: US (occurrence: US)
  Receive Date: 20151221
  Receipt Date: 20160226
  Transmission Date: 20160526
  Serious: Yes (Hospitalization, Other)
  Sender: FDA-Public Use
  Company Number: US-PFIZER INC-2015412471

PATIENT
  Age: 67 Year
  Sex: Male
  Weight: 84.3 kg

DRUGS (3)
  1. SUTENT [Suspect]
     Active Substance: SUNITINIB MALATE
     Indication: RENAL CANCER METASTATIC
     Dosage: 50 MG, 28 DAYS ON/14 DAYS OFF
     Dates: start: 20151120, end: 20151201
  2. ADVIL [Concomitant]
     Active Substance: IBUPROFEN
     Dosage: UNK, AS NEEDED
  3. PRILOSEC [Concomitant]
     Active Substance: OMEPRAZOLE MAGNESIUM
     Dosage: UNK

REACTIONS (3)
  - Dehydration [Recovered/Resolved]
  - Renal injury [Unknown]
  - Liver injury [Unknown]

NARRATIVE: CASE EVENT DATE: 20151120
